FAERS Safety Report 5839070-2 (Version None)
Quarter: 2008Q3

REPORT INFORMATION
  Report Type: 
  Country: None (occurrence: None)
  Receive Date: 20080808
  Receipt Date: 20080731
  Transmission Date: 20090109
  Serious: Yes (Other)
  Sender: FDA-Public Use
  Company Number: US-PFIZER INC-2004096788

PATIENT
  Sex: Male
  Weight: 68 kg

DRUGS (13)
  1. SU-011,248 [Suspect]
     Indication: GASTROINTESTINAL STROMAL TUMOUR
     Route: 048
     Dates: start: 20040310, end: 20041012
  2. LORAZEPAM [Concomitant]
     Indication: ANXIETY
     Route: 048
  3. MARINOL [Concomitant]
     Route: 048
  4. NEXIUM [Concomitant]
     Route: 048
  5. COMPAZINE [Concomitant]
     Indication: NAUSEA
     Route: 048
  6. EFFEXOR [Concomitant]
     Dosage: DAILY DOSE:225MG
     Route: 048
  7. MORPHINE [Concomitant]
  8. KYTRIL [Concomitant]
     Dosage: DAILY DOSE:1MG
     Route: 048
  9. IMITREX [Concomitant]
  10. REGLAN [Concomitant]
     Route: 048
  11. RESTORIL [Concomitant]
  12. LISINOPRIL [Concomitant]
     Dosage: DAILY DOSE:5MG
     Route: 048
  13. ATIVAN [Concomitant]

REACTIONS (2)
  - DEEP VEIN THROMBOSIS [None]
  - WOUND DEHISCENCE [None]
